FAERS Safety Report 8837569 (Version 1)
Quarter: 2012Q4

REPORT INFORMATION
  Report Type: Report from Study
  Country: US (occurrence: US)
  Receive Date: 20121012
  Receipt Date: 20121012
  Transmission Date: 20130627
  Serious: Yes (Disabling)
  Sender: FDA-Public Use
  Company Number: US-US-EMD SERONO, INC.-7165646

PATIENT
  Sex: Female

DRUGS (2)
  1. REBIF [Suspect]
     Indication: RELAPSING-REMITTING MULTIPLE SCLEROSIS
     Route: 058
     Dates: start: 20021003
  2. TYLENOL [Concomitant]
     Indication: INFLUENZA LIKE ILLNESS

REACTIONS (6)
  - Deafness [Not Recovered/Not Resolved]
  - Nerve injury [Not Recovered/Not Resolved]
  - Feeling abnormal [Unknown]
  - Gait disturbance [Unknown]
  - Injection site erythema [Unknown]
  - Headache [Unknown]
